FAERS Safety Report 8087826-0 (Version None)
Quarter: 2012Q1

REPORT INFORMATION
  Report Type: 
  Country: None (occurrence: None)
  Receive Date: 20120128
  Receipt Date: 20110606
  Transmission Date: 20120608
  Serious: No
  Sender: FDA-Public Use
  Company Number: US-ABBOTT-11P-163-0730579-00

PATIENT
  Age: 63 Year
  Sex: Female

DRUGS (8)
  1. LAMISIL [Concomitant]
     Indication: RASH
  2. ZITHROMAX [Concomitant]
     Indication: SINUSITIS
     Dates: start: 20110201
  3. HUMIRA [Suspect]
     Indication: CROHN'S DISEASE
     Dates: start: 20080101, end: 20110201
  4. OMNICEF [Concomitant]
     Indication: SINUSITIS
     Dates: start: 20110501
  5. HUMIRA [Suspect]
  6. GENERIC FOR ZEBETA [Concomitant]
     Indication: PRODUCT USED FOR UNKNOWN INDICATION
  7. FINACEA [Concomitant]
     Indication: PRODUCT USED FOR UNKNOWN INDICATION
     Route: 061
  8. CORTISONE ACETATE [Concomitant]
     Indication: RASH

REACTIONS (6)
  - SINUSITIS [None]
  - HYPOAESTHESIA [None]
  - LIQUID PRODUCT PHYSICAL ISSUE [None]
  - RASH [None]
  - PARAESTHESIA [None]
  - PAIN IN EXTREMITY [None]
